FAERS Safety Report 16627599 (Version 4)
Quarter: 2019Q3

REPORT INFORMATION
  Report Type: Spontaneous
  Country: US (occurrence: US)
  Receive Date: 20190724
  Receipt Date: 20190917
  Transmission Date: 20191004
  Serious: Yes (Other)
  Sender: FDA-Public Use
  Company Number: US-ALMIRALL, LLC-2019AQU000351

PATIENT

DRUGS (1)
  1. SEYSARA [Suspect]
     Active Substance: SARECYCLINE HYDROCHLORIDE
     Indication: ACNE
     Dosage: 100 MG, QD
     Route: 048
     Dates: start: 201904, end: 20190708

REACTIONS (9)
  - Lethargy [Recovering/Resolving]
  - Pruritus [Recovering/Resolving]
  - Asthenia [Recovering/Resolving]
  - Malaise [Recovering/Resolving]
  - Jaundice [Recovering/Resolving]
  - Blood bilirubin increased [Recovering/Resolving]
  - Decreased appetite [Recovering/Resolving]
  - Liver injury [Recovering/Resolving]
  - Sleep disorder [Recovering/Resolving]

NARRATIVE: CASE EVENT DATE: 2019
